FAERS Safety Report 7742411-2 (Version None)
Quarter: 2011Q3

REPORT INFORMATION
  Report Type: 
  Country: None (occurrence: None)
  Receive Date: 20110907
  Receipt Date: 20110907
  Transmission Date: 20111222
  Serious: No
  Sender: FDA-Public Use
  Company Number: None

PATIENT
  Sex: Male

DRUGS (1)
  1. LANSOPRAZOLE [Suspect]
     Dosage: 30MG QD PO
     Route: 048
     Dates: start: 20110701, end: 20110822

REACTIONS (2)
  - PRODUCT SUBSTITUTION ISSUE [None]
  - DYSPEPSIA [None]
